FAERS Safety Report 9226543 (Version 3)
Quarter: 2013Q2

REPORT INFORMATION
  Report Type: Spontaneous
  Country: TN (occurrence: TN)
  Receive Date: 20130412
  Receipt Date: 20130521
  Transmission Date: 20140414
  Serious: Yes (Hospitalization, Other)
  Sender: FDA-Public Use
  Company Number: TN-BIOGENIDEC-2013BI031336

PATIENT
  Age: 45 Year
  Sex: Female

DRUGS (2)
  1. TYSABRI [Suspect]
     Indication: MULTIPLE SCLEROSIS
     Route: 042
     Dates: start: 2008, end: 20120922
  2. GILENYA [Concomitant]
     Indication: MULTIPLE SCLEROSIS
     Dates: start: 20130110, end: 20130401

REACTIONS (1)
  - No adverse event [Unknown]
